FAERS Safety Report 8007488-8 (Version None)
Quarter: 2011Q4

REPORT INFORMATION
  Report Type: 
  Country: None (occurrence: None)
  Receive Date: 20111227
  Receipt Date: 20111216
  Transmission Date: 20120403
  Serious: Yes (Other)
  Sender: FDA-Public Use
  Company Number: US-BAYER-2011-121909

PATIENT
  Age: 85 Year
  Sex: Female
  Weight: 77 kg

DRUGS (5)
  1. ASPIRIN [Suspect]
     Indication: BACK PAIN
     Dosage: 1 DF, PRN
     Route: 048
     Dates: start: 20110101, end: 20111215
  2. CARDIOVASCULAR SYSTEM DRUGS [Concomitant]
  3. BAYER EXTRA STRENGTH BACK + BODY PAIN [Suspect]
     Dosage: UNK UNK, PRN
     Route: 048
  4. LISINOPRIL [Concomitant]
     Dosage: 1 DF, QD
     Route: 048
  5. ASPIRIN [Concomitant]
     Indication: PROPHYLAXIS

REACTIONS (7)
  - ASPHYXIA [None]
  - THROAT IRRITATION [None]
  - OESOPHAGEAL INJURY [None]
  - SOMNOLENCE [None]
  - OESOPHAGEAL PAIN [None]
  - DYSPHAGIA [None]
  - RETCHING [None]
